FAERS Safety Report 6729851-5 (Version None)
Quarter: 2010Q2

REPORT INFORMATION
  Report Type: 
  Country: None (occurrence: None)
  Receive Date: 20100518
  Receipt Date: 20100510
  Transmission Date: 20101027
  Serious: No
  Sender: FDA-Public Use
  Company Number: DE-ASTRAZENECA-2010SE21602

PATIENT
  Sex: Female

DRUGS (3)
  1. SEROQUEL [Suspect]
     Indication: SCHIZOAFFECTIVE DISORDER
     Dosage: 100-600 MG DAILY
     Route: 048
     Dates: start: 20040301, end: 20090301
  2. SEROQUEL [Interacting]
     Dosage: 50-200 MG, UNKNOWN FREUQENCY
     Route: 048
     Dates: start: 20090301, end: 20100301
  3. ERGENYL CHRONO [Interacting]
     Indication: SCHIZOAFFECTIVE DISORDER
     Dosage: 600-800 MG UNKNOWN FREQUENCY
     Route: 048
     Dates: start: 20040301

REACTIONS (2)
  - DRUG INTERACTION [None]
  - LEUKOPENIA [None]
